FAERS Safety Report 12957750 (Version 1)
Quarter: 2016Q4

REPORT INFORMATION
  Report Type: Report from Study
  Country: None (occurrence: US)
  Receive Date: 20161118
  Receipt Date: 20161118
  Transmission Date: 20170207
  Serious: Yes (Death, Other)
  Sender: FDA-Public Use
  Company Number: US-ABBVIE-16K-163-1785352-00

PATIENT
  Sex: Female

DRUGS (1)
  1. HUMIRA [Suspect]
     Active Substance: ADALIMUMAB
     Indication: RHEUMATOID ARTHRITIS
     Route: 058
     Dates: start: 20160607, end: 20161108

REACTIONS (4)
  - Renal failure [Fatal]
  - Procedural complication [Fatal]
  - Cardiac ablation [Unknown]
  - Hepatic failure [Fatal]

NARRATIVE: CASE EVENT DATE: 2016
